FAERS Safety Report 9633273 (Version 2)
Quarter: 2013Q4

REPORT INFORMATION
  Report Type: Spontaneous
  Country: PL (occurrence: PL)
  Receive Date: 20131021
  Receipt Date: 20131031
  Transmission Date: 20140711
  Serious: Yes (Death)
  Sender: FDA-Public Use
  Company Number: PHHY2013PL117737

PATIENT
  Age: 42 Year
  Sex: Male

DRUGS (2)
  1. CARBAMAZEPINE [Suspect]
  2. ETHANOL [Suspect]

REACTIONS (4)
  - Poisoning [Fatal]
  - Completed suicide [Fatal]
  - Respiratory failure [Fatal]
  - Cardiac arrest [Fatal]
